FAERS Safety Report 4749239-6 (Version None)
Quarter: 2005Q3

REPORT INFORMATION
  Report Type: 
  Country: None (occurrence: None)
  Receive Date: 20050817
  Receipt Date: 20050808
  Transmission Date: 20060218
  Serious: Yes (Death, Hospitalization)
  Sender: FDA-Public Use
  Company Number: HQWYE525017JUN05

PATIENT
  Age: 61 Year
  Sex: Male

DRUGS (4)
  1. ANCARON (AMIODARONE TABLET) [Suspect]
     Indication: VENTRICULAR TACHYCARDIA
     Dosage: 100 MG 2X PER 1 DAY ORAL
     Route: 048
     Dates: start: 20050215, end: 20050517
  2. DIGOXIN [Concomitant]
  3. VASOLAN (VERAPAMIL HYDROCHLORIDE) [Concomitant]
  4. MEXITIL [Concomitant]

REACTIONS (8)
  - BLOOD LACTATE DEHYDROGENASE INCREASED [None]
  - BLOOD UREA INCREASED [None]
  - C-REACTIVE PROTEIN INCREASED [None]
  - HAEMATOCRIT DECREASED [None]
  - HAEMOGLOBIN DECREASED [None]
  - INTERSTITIAL LUNG DISEASE [None]
  - STAPHYLOCOCCAL SEPSIS [None]
  - WHITE BLOOD CELL COUNT DECREASED [None]
